FAERS Safety Report 6416577-0 (Version None)
Quarter: 2009Q4

REPORT INFORMATION
  Report Type: 
  Country: None (occurrence: None)
  Receive Date: 20091027
  Receipt Date: 20090720
  Transmission Date: 20100525
  Serious: Yes (Death)
  Sender: FDA-Public Use
  Company Number: PHEH2009US13233

PATIENT
  Sex: Male

DRUGS (4)
  1. EXJADE [Suspect]
     Indication: MYELODYSPLASTIC SYNDROME
     Dosage: 2500 MG
     Route: 048
     Dates: start: 20060223
  2. EXJADE [Suspect]
     Indication: IRON OVERLOAD
  3. LOPRESSOR [Concomitant]
     Dosage: 50 MG, UNK
     Route: 048
  4. ANTIARRHYTHMICS, CLASS I AND III [Concomitant]

REACTIONS (1)
  - DEATH [None]
